FAERS Safety Report 12086784 (Version 1)
Quarter: 2016Q1

REPORT INFORMATION
  Report Type: Spontaneous
  Country: US (occurrence: US)
  Receive Date: 20160217
  Receipt Date: 20160217
  Transmission Date: 20160526
  Serious: No
  Sender: FDA-Public Use
  Company Number: US-ALLERGAN-1501627US

PATIENT
  Sex: Female

DRUGS (1)
  1. RESTASIS [Suspect]
     Active Substance: CYCLOSPORINE
     Indication: PREOPERATIVE CARE
     Dosage: 2 GTT, BID
     Route: 047
     Dates: start: 20150114, end: 20150116

REACTIONS (4)
  - Asthenopia [Unknown]
  - Epistaxis [Unknown]
  - Sinus headache [Unknown]
  - Off label use [Unknown]

NARRATIVE: CASE EVENT DATE: 20150114
